FAERS Safety Report 16425288 (Version 1)
Quarter: 2019Q2

REPORT INFORMATION
  Report Type: Spontaneous
  Country: US (occurrence: US)
  Receive Date: 20190613
  Receipt Date: 20190613
  Transmission Date: 20190711
  Serious: Yes (Other)
  Sender: FDA-Public Use
  Company Number: US-ROCHE-2336525

PATIENT
  Sex: Male
  Weight: 70.37 kg

DRUGS (3)
  1. TYVASO [Suspect]
     Active Substance: TREPROSTINIL
     Indication: PULMONARY ARTERIAL HYPERTENSION
     Dosage: 3-9 BREATHS INHALED, FORM STRENGTH: 0.6 MG/ML
     Route: 065
     Dates: start: 20181211
  2. ADEMPAS [Concomitant]
     Active Substance: RIOCIGUAT
  3. CELLCEPT [Suspect]
     Active Substance: MYCOPHENOLATE MOFETIL\MYCOPHENOLATE MOFETIL HYDROCHLORIDE
     Indication: PRODUCT USED FOR UNKNOWN INDICATION
     Route: 065

REACTIONS (3)
  - Skin neoplasm excision [Unknown]
  - Abdominal distension [Unknown]
  - Ill-defined disorder [Unknown]
